FAERS Safety Report 24604136 (Version 2)
Quarter: 2024Q4

REPORT INFORMATION
  Report Type: Spontaneous
  Country: GB (occurrence: GB)
  Receive Date: 20241111
  Receipt Date: 20241218
  Transmission Date: 20250114
  Serious: Yes (Other)
  Sender: TEVA
  Company Number: GB-IPCA LABORATORIES LIMITED-IPC-2024-GB-002545

PATIENT
  Age: 60 Year
  Sex: Female

DRUGS (1)
  1. LEVOFLOXACIN [Suspect]
     Active Substance: LEVOFLOXACIN
     Indication: Product used for unknown indication
     Dosage: UNK
     Route: 065

REACTIONS (2)
  - Delirium [Unknown]
  - Psychotic behaviour [Unknown]
